FAERS Safety Report 17804258 (Version 1)
Quarter: 2020Q2

REPORT INFORMATION
  Report Type: Spontaneous
  Country: US (occurrence: US)
  Receive Date: 20200519
  Receipt Date: 20200519
  Transmission Date: 20200714
  Serious: Yes (Other)
  Sender: FDA-Public Use
  Company Number: US-FRESENIUS KABI-FK202004846

PATIENT
  Sex: Male

DRUGS (1)
  1. OXYTOCIN INJECTION (MANUFACTURER UNKNOWN) [Suspect]
     Active Substance: OXYTOCIN
     Indication: LABOUR AUGMENTATION
     Dosage: UNKNOWN
     Route: 064

REACTIONS (9)
  - Constipation [Unknown]
  - Microcephaly [Unknown]
  - Scoliosis [Unknown]
  - Foetal exposure during pregnancy [Unknown]
  - Hypoxic-ischaemic encephalopathy [Unknown]
  - Seizure [Unknown]
  - Quadriparesis [Unknown]
  - Developmental delay [Unknown]
  - Intellectual disability [Unknown]
